FAERS Safety Report 7411114-6 (Version None)
Quarter: 2011Q2

REPORT INFORMATION
  Report Type: 
  Country: None (occurrence: None)
  Receive Date: 20110413
  Receipt Date: 20100322
  Transmission Date: 20111010
  Serious: No
  Sender: FDA-Public Use
  Company Number: US-BRISTOL-MYERS SQUIBB COMPANY-14966899

PATIENT
  Age: 67 Year
  Sex: Male

DRUGS (12)
  1. OCTREOTIDE ACETATE [Concomitant]
     Indication: DIARRHOEA
     Route: 058
  2. DEXAMETHASONE [Concomitant]
     Indication: PREMEDICATION
     Route: 042
  3. DIPHENHYDRAMINE [Concomitant]
     Indication: PREMEDICATION
     Route: 042
  4. SODIUM CHLORIDE [Concomitant]
     Route: 042
  5. ALOXI [Concomitant]
     Indication: PREMEDICATION
     Route: 042
  6. LORAZEPAM [Concomitant]
     Indication: PREMEDICATION
     Route: 042
  7. FOLINIC ACID [Suspect]
     Indication: COLON CANCER
     Dates: end: 20091208
  8. ZANTAC [Concomitant]
     Indication: PREMEDICATION
     Route: 042
  9. FLUOROURACIL [Suspect]
     Indication: COLON CANCER
     Dates: end: 20091208
  10. IRINOTECAN HCL [Suspect]
     Indication: COLON CANCER
     Route: 042
  11. ERBITUX [Suspect]
     Indication: COLON CANCER
     Route: 042
     Dates: start: 20091022
  12. SANDOSTATIN [Concomitant]
     Dosage: 20 MG, LAR

REACTIONS (2)
  - MALAISE [None]
  - NO ADVERSE EVENT [None]
